FAERS Safety Report 7987694-9 (Version None)
Quarter: 2011Q4

REPORT INFORMATION
  Report Type: 
  Country: None (occurrence: None)
  Receive Date: 20111216
  Receipt Date: 20110523
  Transmission Date: 20120403
  Serious: Yes (Life-Threatening, Other)
  Sender: FDA-Public Use
  Company Number: US-BRISTOL-MYERS SQUIBB COMPANY-15697436

PATIENT
  Sex: Female

DRUGS (2)
  1. ABILIFY [Suspect]
     Route: 048
  2. LEXAPRO [Suspect]
     Route: 048

REACTIONS (2)
  - SUICIDAL IDEATION [None]
  - DRUG INEFFECTIVE [None]
